FAERS Safety Report 4672932-0 (Version None)
Quarter: 2005Q2

REPORT INFORMATION
  Report Type: 
  Country: None (occurrence: None)
  Receive Date: 20050524
  Receipt Date: 20050510
  Transmission Date: 20051028
  Serious: Yes (Other)
  Sender: FDA-Public Use
  Company Number: 2005072641

PATIENT
  Age: 16 Year
  Sex: Male

DRUGS (1)
  1. DRAMAMINE [Suspect]
     Dosage: 24 TABLETS ONCE ORAL
     Route: 048
     Dates: start: 20050510, end: 20050510

REACTIONS (4)
  - COMMUNICATION DISORDER [None]
  - CONFUSIONAL STATE [None]
  - MEMORY IMPAIRMENT [None]
  - OVERDOSE [None]
